FAERS Safety Report 7274042-5 (Version None)
Quarter: 2011Q1

REPORT INFORMATION
  Report Type: 
  Country: None (occurrence: None)
  Receive Date: 20110203
  Receipt Date: 20110126
  Transmission Date: 20110831
  Serious: Yes (Hospitalization)
  Sender: FDA-Public Use
  Company Number: US-BRISTOL-MYERS SQUIBB COMPANY-15467426

PATIENT
  Age: 70 Year
  Sex: Female

DRUGS (9)
  1. ACETAMINOPHEN AND HYDROCODONE BITARTRATE [Concomitant]
     Dosage: HYDROCODONE APAP
     Dates: start: 20010101
  2. VITAMIN D [Concomitant]
     Dates: start: 20080929
  3. TRIAMCINOLONE [Concomitant]
     Dates: start: 20080923
  4. MICARDIS [Concomitant]
     Dates: start: 20090812, end: 20101220
  5. MECLIZINE [Concomitant]
     Dates: start: 20101203
  6. TYLENOL-500 [Concomitant]
     Dates: start: 19990101
  7. ABATACEPT [Suspect]
     Dosage: 1DF=125 UNITS NOS. LAST DOSE ON 11DEC10 PRIOR TO EVENT
     Route: 058
     Dates: start: 20081009
  8. METHOTREXATE [Suspect]
     Dates: start: 20010101
  9. SYNTHROID [Concomitant]
     Indication: HYPOTHYROIDISM
     Dosage: RESTARTED:05NOV09-20DEC09 21DEC10-ONG
     Dates: start: 20030101

REACTIONS (4)
  - URINARY TRACT INFECTION [None]
  - RENAL FAILURE ACUTE [None]
  - DEHYDRATION [None]
  - CEREBROVASCULAR DISORDER [None]
